FAERS Safety Report 9391768 (Version 1)
Quarter: 2013Q3

REPORT INFORMATION
  Report Type: Spontaneous
  Country: US (occurrence: US)
  Receive Date: 20130709
  Receipt Date: 20130709
  Transmission Date: 20140515
  Serious: No
  Sender: FDA-Public Use
  Company Number: US-BAYER-2013-083562

PATIENT
  Age: 70 Year
  Sex: Female
  Weight: 109.75 kg

DRUGS (5)
  1. ALEVE CAPLET [Suspect]
     Dosage: 1 DF, QD WITH FOOD
     Route: 048
     Dates: start: 2013
  2. TYLENOL [PARACETAMOL] [Concomitant]
  3. CALCIUM [Concomitant]
  4. MAGNESIUM [Concomitant]
  5. STOOL SOFTENER [Concomitant]

REACTIONS (2)
  - Drug ineffective [None]
  - Incorrect drug administration duration [None]
